FAERS Safety Report 9207023 (Version 1)
Quarter: 2013Q1

REPORT INFORMATION
  Report Type: Spontaneous
  Country: US (occurrence: None)
  Receive Date: 20120731
  Receipt Date: 20120731
  Transmission Date: 20140127
  Serious: No
  Sender: FDA-Public Use
  Company Number: 2012MZ000318

PATIENT
  Age: 40 Year
  Sex: Female
  Weight: 51.71 kg

DRUGS (6)
  1. XEOMIN [Suspect]
     Indication: INTRACRANIAL ANEURYSM
     Dates: start: 20120104, end: 20120104
  2. VALIUM [Concomitant]
  3. ATIVAN [Concomitant]
  4. LAMICTAL [Concomitant]
  5. TOPAMAX [Concomitant]
  6. OXYCODONE [Concomitant]

REACTIONS (3)
  - Oedema peripheral [None]
  - Therapeutic response decreased [None]
  - Injection site pain [None]
